FAERS Safety Report 19374437 (Version 4)
Quarter: 2021Q4

REPORT INFORMATION
  Report Type: Spontaneous
  Country: CA (occurrence: CA)
  Receive Date: 20210603
  Receipt Date: 20211130
  Transmission Date: 20220303
  Serious: Yes (Death, Life-Threatening, Other)
  Sender: FDA-Public Use
  Company Number: CA-BEH-2021132458

PATIENT
  Age: 78 Year
  Sex: Female

DRUGS (4)
  1. ALBUREX [Suspect]
     Active Substance: ALBUMIN HUMAN
     Indication: Acute respiratory distress syndrome
     Dosage: 4/4 VIAL 100ML
     Route: 065
     Dates: start: 20210304, end: 20210304
  2. ALBUREX [Suspect]
     Active Substance: ALBUMIN HUMAN
     Indication: Dialysis
     Dosage: ANOTHER VIAL
     Route: 042
     Dates: start: 20210303, end: 20210303
  3. ALBUREX [Suspect]
     Active Substance: ALBUMIN HUMAN
     Dosage: 100 MILLILITER
     Route: 065
  4. ALBUREX [Suspect]
     Active Substance: ALBUMIN HUMAN
     Dosage: UNK
     Route: 042

REACTIONS (24)
  - Transfusion-related acute lung injury [Fatal]
  - Tachypnoea [Fatal]
  - Dyspnoea [Fatal]
  - Tachycardia [Fatal]
  - Respiratory distress [Fatal]
  - Hypertension [Fatal]
  - Pulmonary oedema [Fatal]
  - Blood culture negative [Fatal]
  - Cardiac failure [Fatal]
  - Condition aggravated [Fatal]
  - Fatigue [Fatal]
  - Blood pressure increased [Fatal]
  - Hypervolaemia [Fatal]
  - Hypoxia [Fatal]
  - Lung opacity [Fatal]
  - Oxygen saturation decreased [Fatal]
  - Oxygen therapy [Fatal]
  - Pleural effusion [Fatal]
  - Respiratory rate increased [Fatal]
  - Somnolence [Fatal]
  - Heart rate increased [Fatal]
  - Transfusion reaction [Fatal]
  - Troponin increased [Fatal]
  - Wheezing [Fatal]

NARRATIVE: CASE EVENT DATE: 20210304
